FAERS Safety Report 5618506-6 (Version None)
Quarter: 2008Q1

REPORT INFORMATION
  Report Type: 
  Country: None (occurrence: None)
  Receive Date: 20080204
  Receipt Date: 20080121
  Transmission Date: 20080703
  Serious: Yes (Other)
  Sender: FDA-Public Use
  Company Number: 68974

PATIENT
  Age: 41 Year
  Sex: Female
  Weight: 77.5651 kg

DRUGS (6)
  1. NAPROXEN SODIUM AND PSEUDOEPHEDRINE HYDROCHLORIDE [Suspect]
     Indication: NASOPHARYNGITIS
     Dosage: 220-120MG/X1/ ORAL
     Route: 048
     Dates: start: 20050101, end: 20050101
  2. ALEVE [Suspect]
     Indication: NASOPHARYNGITIS
     Dosage: ORAL
     Route: 048
     Dates: start: 20071031, end: 20071031
  3. CYMBALTA [Concomitant]
  4. SYNTHROID [Concomitant]
  5. VALTREX [Concomitant]
  6. LASIX [Concomitant]

REACTIONS (7)
  - DYSPHAGIA [None]
  - NAUSEA [None]
  - NERVOUSNESS [None]
  - OEDEMA PERIPHERAL [None]
  - PRURITUS [None]
  - SWELLING FACE [None]
  - SWOLLEN TONGUE [None]
